FAERS Safety Report 15490447 (Version 25)
Quarter: 2020Q3

REPORT INFORMATION
  Report Type: Report from Study
  Country: MY (occurrence: MY)
  Receive Date: 20181011
  Receipt Date: 20200818
  Transmission Date: 20201102
  Serious: Yes (Death, Hospitalization, Other)
  Sender: FDA-Public Use
  Company Number: PHHY2018MY120936

PATIENT
  Age: 78 Year
  Sex: Male
  Weight: 54 kg

DRUGS (9)
  1. VOTRIENT [Suspect]
     Active Substance: PAZOPANIB HYDROCHLORIDE
     Indication: RENAL CELL CARCINOMA
  2. AMLODIPINE [Concomitant]
     Active Substance: AMLODIPINE BESYLATE
     Indication: HYPERTENSION
     Dosage: 5 MG, UNK
     Route: 065
     Dates: start: 2005
  3. VOTRIENT [Suspect]
     Active Substance: PAZOPANIB HYDROCHLORIDE
     Indication: METASTASES TO LUNG
     Dosage: 400 MG, QD
     Route: 048
     Dates: start: 20180814, end: 20180913
  4. PERINDOPRIL [Concomitant]
     Active Substance: PERINDOPRIL
     Indication: HYPERTENSION
     Dosage: 4 MG, UNK
     Route: 065
     Dates: start: 2005
  5. BERODUAL METERED?DOSE INHALER [Concomitant]
     Indication: ASTHMA
     Dosage: 2 DF (PUFFS), UNK
     Route: 065
  6. NEUROBION [Concomitant]
     Active Substance: CYANOCOBALAMIN\PYRIDOXINE\THIAMINE
     Indication: NEUROPATHY PERIPHERAL
     Route: 048
  7. VOTRIENT [Suspect]
     Active Substance: PAZOPANIB HYDROCHLORIDE
     Indication: CLEAR CELL RENAL CELL CARCINOMA
     Dosage: 400 MG, QD
     Route: 048
     Dates: start: 20180705, end: 20180730
  8. ACTRAPID [Concomitant]
     Active Substance: INSULIN HUMAN
     Indication: DIABETES MELLITUS
     Dosage: 6 OT, UNK
     Route: 058
     Dates: start: 20181013, end: 20181013
  9. SIMVASTATIN. [Concomitant]
     Active Substance: SIMVASTATIN
     Indication: DYSLIPIDAEMIA
     Dosage: 10 MG, UNK
     Route: 065
     Dates: start: 2005

REACTIONS (48)
  - Skin exfoliation [Recovered/Resolved]
  - Pyrexia [Recovering/Resolving]
  - Lymphocyte percentage decreased [Unknown]
  - White blood cell count increased [Unknown]
  - Arrhythmia [Recovered/Resolved]
  - Blood urea increased [Unknown]
  - Skin exfoliation [Recovered/Resolved]
  - Neutrophil percentage increased [Unknown]
  - Lymphocyte count decreased [Unknown]
  - Blood alkaline phosphatase increased [Not Recovered/Not Resolved]
  - Tachycardia [Recovered/Resolved]
  - Neutrophil count increased [Unknown]
  - Cough [Recovered/Resolved]
  - Aspiration [Recovered/Resolved]
  - Acute kidney injury [Not Recovered/Not Resolved]
  - Conjunctivitis [Recovered/Resolved]
  - Alanine aminotransferase increased [Not Recovered/Not Resolved]
  - Aspartate aminotransferase increased [Recovering/Resolving]
  - Breath sounds abnormal [Recovered/Resolved]
  - Pneumonia [Recovered/Resolved]
  - Lethargy [Not Recovered/Not Resolved]
  - Hypophagia [Not Recovered/Not Resolved]
  - Electrocardiogram QT prolonged [Unknown]
  - Delirium [Recovered/Resolved]
  - Hepatic function abnormal [Unknown]
  - Blood albumin decreased [Unknown]
  - Stomatitis [Recovered/Resolved]
  - Skin reaction [Not Recovered/Not Resolved]
  - Skin exfoliation [Recovering/Resolving]
  - Protein total decreased [Unknown]
  - Basophil count decreased [Unknown]
  - Renal cell carcinoma [Fatal]
  - Hypotension [Recovered/Resolved]
  - Pneumonia [Not Recovered/Not Resolved]
  - Eosinophil percentage decreased [Not Recovered/Not Resolved]
  - Blood creatinine increased [Unknown]
  - Blood bilirubin increased [Recovering/Resolving]
  - Bilirubin conjugated increased [Recovering/Resolving]
  - Haematocrit decreased [Unknown]
  - Platelet count increased [Unknown]
  - Dysphonia [Not Recovered/Not Resolved]
  - Metastases to lung [Fatal]
  - Malignant neoplasm progression [Fatal]
  - Stomatitis [Recovered/Resolved]
  - Vocal cord paralysis [Not Recovered/Not Resolved]
  - Red blood cell count decreased [Unknown]
  - Globulins increased [Unknown]
  - Monocyte count increased [Unknown]

NARRATIVE: CASE EVENT DATE: 20180731
